FAERS Safety Report 10314454 (Version 3)
Quarter: 2015Q1

REPORT INFORMATION
  Report Type: Spontaneous
  Country: US (occurrence: None)
  Receive Date: 20140717
  Receipt Date: 20150123
  Transmission Date: 20150720
  Serious: Yes (Death)
  Sender: FDA-Public Use
  Company Number: UNT-2014-003759

PATIENT
  Age: 58 Year
  Sex: Female
  Weight: 89 kg

DRUGS (15)
  1. ECONAZOLE(ECONAZOLE) [Concomitant]
  2. METFORMIN(METOFRMIN) [Concomitant]
  3. ROFLUMILAST(ROFLUMILAST) [Concomitant]
  4. DILTIAZEM(DILTAZEM) [Concomitant]
  5. GLIMEPIRIDE(GLIMEPIRIDE) [Concomitant]
  6. ALLOPURINOL(ALLOPURINOL) [Concomitant]
  7. BYSTOLIC(NEVIVOLOL HYDROCHLORIDE) [Concomitant]
  8. MONTELUKAST(MONTELKAST) [Concomitant]
  9. SPIRONOLACTONE (SPIRONLACTONE) [Concomitant]
  10. CELEXA(CITALOPRAM HYDROBROMIDE) [Concomitant]
  11. DIGOXIN(DIGOXIN) [Concomitant]
  12. TORESEMIDE(TORASEMIDE) [Concomitant]
  13. TYVASO [Suspect]
     Active Substance: TREPROSTINIL
     Indication: PULMONARY ARTERIAL HYPERTENSION
     Route: 055
     Dates: start: 20140610
  14. ADVAIR (FLUTICASONE PROPRIONATE, SALMETROL XINAFOATE) [Concomitant]
  15. NEXIUM [Concomitant]
     Active Substance: ESOMEPRAZOLE MAGNESIUM

REACTIONS (2)
  - Death [None]
  - Cardiac failure [None]

NARRATIVE: CASE EVENT DATE: 201407
